FAERS Safety Report 24248061 (Version 4)
Quarter: 2024Q4

REPORT INFORMATION
  Report Type: Spontaneous
  Country: FR (occurrence: FR)
  Receive Date: 20240826
  Receipt Date: 20241007
  Transmission Date: 20250115
  Serious: Yes (Other)
  Sender: CIPLA
  Company Number: FR-AFSSAPS-AN2024001042

PATIENT

DRUGS (8)
  1. ESOMEPRAZOLE [Suspect]
     Active Substance: ESOMEPRAZOLE
     Indication: Gastrooesophageal reflux prophylaxis
     Dosage: 1 DOSAGE FORM, QD
     Route: 048
  2. ATORVASTATIN [Suspect]
     Active Substance: ATORVASTATIN
     Indication: Dyslipidaemia
     Dosage: 1 DOSAGE FORM, QD
     Route: 048
  3. CLOPIDOGREL HYDROCHLORIDE [Suspect]
     Active Substance: CLOPIDOGREL HYDROCHLORIDE
     Indication: Cardiovascular event prophylaxis
     Dosage: 1 DOSAGE FORM, QD
     Route: 048
  4. EBASTINE [Suspect]
     Active Substance: EBASTINE
     Indication: Nasal polyps
     Dosage: 1 DOSAGE FORM, QD
  5. CANDESARTAN CILEXETIL [Suspect]
     Active Substance: CANDESARTAN CILEXETIL
     Indication: Hypertension
     Dosage: 1 DOSAGE FORM, QD
     Route: 048
  6. DUPIXENT [Suspect]
     Active Substance: DUPILUMAB
     Indication: Asthma
     Dosage: UNK
     Route: 058
     Dates: start: 2021
  7. NASACORT [Suspect]
     Active Substance: TRIAMCINOLONE ACETONIDE
     Indication: Nasal polyps
     Dosage: 1 DOSAGE FORM, QD
     Route: 045
  8. FLUTICASONE FUROATE\VILANTEROL TRIFENATATE [Suspect]
     Active Substance: FLUTICASONE FUROATE\VILANTEROL TRIFENATATE
     Indication: Nasal polyps
     Dosage: 1 DOSAGE FORM, QD

REACTIONS (2)
  - Urticarial vasculitis [Not Recovered/Not Resolved]
  - Eczema [Not Recovered/Not Resolved]

NARRATIVE: CASE EVENT DATE: 20240601
